FAERS Safety Report 5503419-0 (Version None)
Quarter: 2007Q4

REPORT INFORMATION
  Report Type: 
  Country: None (occurrence: None)
  Receive Date: 20071031
  Receipt Date: 20071022
  Transmission Date: 20080405
  Serious: Yes (Hospitalization, Other)
  Sender: FDA-Public Use
  Company Number: JP-PFIZER INC-2007081279

PATIENT
  Sex: Male

DRUGS (5)
  1. IRINOTECAN HCL [Suspect]
     Indication: SMALL CELL LUNG CANCER STAGE UNSPECIFIED
     Route: 042
     Dates: start: 20070810, end: 20070810
  2. CISPLATIN [Suspect]
     Indication: SMALL CELL LUNG CANCER STAGE UNSPECIFIED
     Route: 042
     Dates: start: 20070727, end: 20070727
  3. CRAVIT [Suspect]
     Indication: BRONCHITIS
     Route: 048
     Dates: start: 20070820, end: 20070826
  4. LOXONIN [Suspect]
     Route: 048
     Dates: start: 20070820, end: 20070820
  5. CALONAL [Suspect]
     Route: 048
     Dates: start: 20070820, end: 20070826

REACTIONS (1)
  - RHABDOMYOLYSIS [None]
